FAERS Safety Report 7414217-5 (Version None)
Quarter: 2011Q2

REPORT INFORMATION
  Report Type: 
  Country: None (occurrence: None)
  Receive Date: 20110414
  Receipt Date: 20110412
  Transmission Date: 20111010
  Serious: Yes (Death)
  Sender: FDA-Public Use
  Company Number: CO-PFIZER INC-2011081261

PATIENT
  Age: 68 Year
  Sex: Male

DRUGS (7)
  1. OMEPRAZOLE [Concomitant]
     Dosage: 20 MG, 1X/DAY
  2. NPH INSULIN [Concomitant]
     Dosage: 80-100 IU/ML, 1X/DAY
     Route: 058
  3. ENALAPRIL [Concomitant]
     Dosage: 20 MG, 2X/DAY
     Route: 048
  4. ESPIRONOLACTONA [Concomitant]
     Dosage: 25 MG, 1X/DAY
  5. LIPITOR [Suspect]
     Indication: DYSLIPIDAEMIA
     Dosage: 10 MG, 1X/DAY
     Route: 048
     Dates: start: 20071001
  6. NORVASC [Suspect]
     Dosage: 10 MG, 1X/DAY
     Route: 048
     Dates: start: 20071001
  7. DIGOXIN [Concomitant]
     Dosage: 0.2 MG/2ML, 1X/DAY
     Route: 042

REACTIONS (1)
  - DEATH [None]
